FAERS Safety Report 25854336 (Version 1)
Quarter: 2025Q3

REPORT INFORMATION
  Report Type: Spontaneous
  Country: US (occurrence: US)
  Receive Date: 20250927
  Receipt Date: 20250927
  Transmission Date: 20251020
  Serious: No
  Sender: AMGEN
  Company Number: US-AMGEN-USASP2025187557

PATIENT
  Sex: Male

DRUGS (2)
  1. LUMAKRAS [Suspect]
     Active Substance: SOTORASIB
     Indication: Product used for unknown indication
     Route: 065
  2. CRESTOR [Suspect]
     Active Substance: ROSUVASTATIN CALCIUM
     Indication: Blood cholesterol abnormal
     Route: 065

REACTIONS (3)
  - Dyspepsia [Unknown]
  - Platelet count decreased [Unknown]
  - Contraindicated product administered [Unknown]
